FAERS Safety Report 9927937 (Version 3)
Quarter: 2014Q1

REPORT INFORMATION
  Report Type: Spontaneous
  Country: US (occurrence: US)
  Receive Date: 20140227
  Receipt Date: 20140328
  Transmission Date: 20141002
  Serious: No
  Sender: FDA-Public Use
  Company Number: US-PFIZER INC-2014053852

PATIENT
  Age: 56 Year
  Sex: Female
  Weight: 47.6 kg

DRUGS (1)
  1. PREMARIN [Suspect]
     Dosage: UNK
     Route: 067

REACTIONS (2)
  - Vaginal mucosal blistering [Unknown]
  - Hypersensitivity [Unknown]
